FAERS Safety Report 15366683 (Version 1)
Quarter: 2018Q3

REPORT INFORMATION
  Report Type: Spontaneous
  Country: US (occurrence: US)
  Receive Date: 20180901
  Receipt Date: 20180901
  Transmission Date: 20181010
  Serious: Yes (Disabling, Other)
  Sender: FDA-Public Use
  Company Number: None

PATIENT
  Age: 69 Year
  Sex: Female

DRUGS (2)
  1. CVS HEALTH STERILE SALE NASAL MIST [Suspect]
     Active Substance: SODIUM CHLORIDE
     Indication: SINUS DISORDER
     Dosage: ?          QUANTITY:1 SPRAY(S);?
     Route: 055
  2. FLONASE [Concomitant]
     Active Substance: FLUTICASONE PROPIONATE

REACTIONS (7)
  - Nausea [None]
  - Dizziness [None]
  - Middle ear effusion [None]
  - Product use issue [None]
  - Sinus operation [None]
  - Sinus congestion [None]
  - Product contamination microbial [None]

NARRATIVE: CASE EVENT DATE: 20180801
